FAERS Safety Report 8001047-9 (Version None)
Quarter: 2011Q4

REPORT INFORMATION
  Report Type: 
  Country: None (occurrence: None)
  Receive Date: 20111222
  Receipt Date: 20110824
  Transmission Date: 20120403
  Serious: No
  Sender: FDA-Public Use
  Company Number: US-GLAXOSMITHKLINE-A0942158A

PATIENT
  Sex: Female

DRUGS (4)
  1. PROZAC [Concomitant]
  2. XANAX [Concomitant]
  3. VITAMIN TAB [Concomitant]
  4. FLONASE [Suspect]
     Indication: SINUSITIS
     Dosage: 2SPR PER DAY
     Route: 045
     Dates: start: 20110814

REACTIONS (2)
  - HEART RATE INCREASED [None]
  - ANXIETY [None]
